FAERS Safety Report 8807803 (Version 1)
Quarter: 2012Q4

REPORT INFORMATION
  Report Type: 
  Country: US (occurrence: US)
  Receive Date: 20120925
  Receipt Date: 20120925
  Transmission Date: 20130627
  Serious: No
  Sender: FDA-Public Use
  Company Number: US-BAYER-2012-081528

PATIENT
  Age: 62 Year
  Sex: Male

DRUGS (2)
  1. STAXYN (FDT/ODT) [Suspect]
     Indication: ERECTILE DYSFUNCTION
     Dosage: 1 DF, ONCE
     Route: 048
  2. DOXAZOSIN [Concomitant]

REACTIONS (1)
  - Headache [Recovered/Resolved]
